FAERS Safety Report 5832192-1 (Version None)
Quarter: 2008Q3

REPORT INFORMATION
  Report Type: 
  Country: None (occurrence: None)
  Receive Date: 20080804
  Receipt Date: 20080724
  Transmission Date: 20090109
  Serious: Yes (Hospitalization, Other)
  Sender: FDA-Public Use
  Company Number: GB-JNJFOC-20080504550

PATIENT
  Sex: Male
  Weight: 96 kg

DRUGS (11)
  1. REMICADE [Suspect]
     Route: 042
  2. REMICADE [Suspect]
     Indication: RHEUMATOID ARTHRITIS
     Route: 042
  3. METHOTREXATE [Concomitant]
  4. AMLODIPINE [Concomitant]
  5. BENDROFLUAZIDE [Concomitant]
  6. FOLIC ACID [Concomitant]
  7. HYDROXOCOBALAMIN [Concomitant]
  8. LACTULOSE [Concomitant]
  9. LANSOPRAZOLE [Concomitant]
  10. LISINOPRIL [Concomitant]
  11. FYBOGEL [Concomitant]

REACTIONS (3)
  - HEPATIC STEATOSIS [None]
  - HYPOTENSION [None]
  - LIVER FUNCTION TEST ABNORMAL [None]
